FAERS Safety Report 9563898 (Version 1)
Quarter: 2013Q3

REPORT INFORMATION
  Report Type: Spontaneous
  Country: AT (occurrence: AT)
  Receive Date: 20130927
  Receipt Date: 20130927
  Transmission Date: 20140515
  Serious: Yes (Other)
  Sender: FDA-Public Use
  Company Number: AT-009507513-1309AUT009623

PATIENT
  Age: 57 Year
  Sex: Male

DRUGS (3)
  1. BOCEPREVIR [Suspect]
     Dosage: UNK
     Route: 048
     Dates: start: 20120504
  2. RIBAVIRIN [Concomitant]
  3. INTERFERON ALFA-2B [Concomitant]

REACTIONS (2)
  - Depression [Unknown]
  - No therapeutic response [Unknown]
